FAERS Safety Report 23321401 (Version 6)
Quarter: 2024Q1

REPORT INFORMATION
  Report Type: Spontaneous
  Country: CA (occurrence: CA)
  Receive Date: 20231220
  Receipt Date: 20240312
  Transmission Date: 20240410
  Serious: Yes (Death, Hospitalization)
  Sender: FDA-Public Use
  Company Number: CA-PFIZER INC-PV202300171061

PATIENT
  Age: 36 Year
  Sex: Male
  Weight: 64.1 kg

DRUGS (14)
  1. SUTENT [Suspect]
     Active Substance: SUNITINIB MALATE
     Indication: Papillary renal cell carcinoma
     Dosage: 37.5 MG, DAILY FOR 4 WEEKS, 14 DAYS, THEN OFF FOR 7 DAYS. (2 WEEKS ON, 1 WEEK OFF IN 21 DAYS CYCLE).
     Route: 048
     Dates: start: 20231023
  2. SUTENT [Suspect]
     Active Substance: SUNITINIB MALATE
     Indication: Metastatic renal cell carcinoma
     Dosage: 37.5 MG, DAILY FOR 4 WEEKS, 14 DAYS, THEN OFF FOR 7 DAYS. (2 WEEKS ON, 1 WEEK OFF IN 21 DAYS CYCLE).
     Route: 048
     Dates: start: 20231209
  3. SUTENT [Suspect]
     Active Substance: SUNITINIB MALATE
     Dosage: 37.5 MG, CYCLIC (ONCE DAILY 2 WEEKS ON, 1 WEEK OFF)
     Route: 048
  4. KETOROLAC [Concomitant]
     Active Substance: KETOROLAC TROMETHAMINE
     Indication: Pain
     Dosage: UNK
  5. HYDROMORPHONE [Concomitant]
     Active Substance: HYDROMORPHONE
     Indication: Pain
     Dosage: UNK
     Route: 042
  6. GABAPENTIN [Concomitant]
     Active Substance: GABAPENTIN
     Indication: Pain
     Dosage: 400 MG, 3X/DAY
  7. PANTOPRAZOLE MAGNESIUM [Concomitant]
     Active Substance: PANTOPRAZOLE MAGNESIUM
     Indication: Gastrooesophageal reflux disease
     Dosage: 40 MG, DAILY
     Route: 048
  8. PEG [PREGABALIN] [Concomitant]
     Indication: Constipation
     Dosage: 17 G, DAILY
     Route: 048
  9. HALOPERIDOL [Concomitant]
     Active Substance: HALOPERIDOL
     Indication: Agitation
     Dosage: 1 MG, AS NEEDED
  10. ACETAMINOPHEN [Concomitant]
     Active Substance: ACETAMINOPHEN
     Indication: Pain
     Dosage: 1000 MG
     Route: 048
  11. CYCLOBENZAPRINE [Concomitant]
     Active Substance: CYCLOBENZAPRINE
  12. LORAZEPAM [Concomitant]
     Active Substance: LORAZEPAM
     Indication: Stress
     Dosage: 0.5 MG, AS NEEDED (2X/DAY: BID)
     Route: 058
  13. LORAZEPAM [Concomitant]
     Active Substance: LORAZEPAM
     Indication: Anxiety
  14. ZOPICLONE [Concomitant]
     Active Substance: ZOPICLONE
     Indication: Insomnia

REACTIONS (3)
  - Neoplasm progression [Fatal]
  - Neuralgia [Unknown]
  - Radiculopathy [Unknown]

NARRATIVE: CASE EVENT DATE: 20240213
